FAERS Safety Report 17885457 (Version 1)
Quarter: 2020Q2

REPORT INFORMATION
  Report Type: Spontaneous
  Country: IN (occurrence: IN)
  Receive Date: 20200611
  Receipt Date: 20200611
  Transmission Date: 20200714
  Serious: Yes (Hospitalization, Other)
  Sender: FDA-Public Use
  Company Number: IN-ACELLA PHARMACEUTICALS, LLC-2085662

PATIENT
  Age: 4 Year
  Sex: Female

DRUGS (1)
  1. PHENYTOIN SODIUM. [Suspect]
     Active Substance: PHENYTOIN SODIUM
     Indication: ACCIDENTAL OVERDOSE
     Route: 048

REACTIONS (9)
  - Retching [Recovered/Resolved]
  - Nystagmus [Recovered/Resolved]
  - Dysarthria [Recovering/Resolving]
  - Dysphagia [Recovered/Resolved]
  - Hypotonia [Recovered/Resolved]
  - Vomiting [Recovered/Resolved]
  - Tonic clonic movements [Recovered/Resolved]
  - Foaming at mouth [Recovered/Resolved]
  - Postictal state [Recovered/Resolved]
